FAERS Safety Report 11695731 (Version 1)
Quarter: 2015Q4

REPORT INFORMATION
  Report Type: Spontaneous
  Country: US (occurrence: None)
  Receive Date: 20151103
  Receipt Date: 20151103
  Transmission Date: 20160304
  Serious: Yes (Life-Threatening, Hospitalization)
  Sender: FDA-Public Use
  Company Number: None

PATIENT
  Age: 66 Year
  Sex: Male

DRUGS (1)
  1. HEPARIN [Suspect]
     Active Substance: HEPARIN SODIUM
     Indication: VASCULAR OPERATION
     Dosage: DURING VASCULAR PROCEDURE?DURING SURGERY ?INTO A VEIN
     Route: 030
     Dates: end: 20151030

REACTIONS (4)
  - Apnoea [None]
  - Anaphylactic reaction [None]
  - Body temperature increased [None]
  - Throat tightness [None]

NARRATIVE: CASE EVENT DATE: 20151030
